FAERS Safety Report 24613311 (Version 1)
Quarter: 2024Q4

REPORT INFORMATION
  Report Type: Spontaneous
  Country: PE (occurrence: PE)
  Receive Date: 20241113
  Receipt Date: 20241113
  Transmission Date: 20250115
  Serious: Yes (Other)
  Sender: BAYER HEALTHCARE PHARMACEUTICALS INC.
  Company Number: PE-BAYER-2024A160747

PATIENT
  Age: 79 Year
  Sex: Female

DRUGS (1)
  1. FINERENONE [Suspect]
     Active Substance: FINERENONE
     Indication: Cardiac failure
     Dosage: 10 MG, QD

REACTIONS (5)
  - Cardiorenal syndrome [None]
  - Acute kidney injury [None]
  - Urinary tract infection [None]
  - Albumin urine present [None]
  - Off label use [None]
